FAERS Safety Report 10610967 (Version 2)
Quarter: 2014Q4

REPORT INFORMATION
  Report Type: Spontaneous
  Country: US (occurrence: US)
  Receive Date: 20141126
  Receipt Date: 20141126
  Transmission Date: 20150529
  Serious: No
  Sender: FDA-Public Use
  Company Number: US-MALLINCKRODT-T201403398

PATIENT
  Sex: Male

DRUGS (4)
  1. GABLOFEN [Suspect]
     Active Substance: BACLOFEN
     Indication: MUSCLE SPASTICITY
     Dosage: 675.7 MCG/DAY (FLEX WITH TWO BOLUSES)
     Route: 037
  2. CYMBALTA [Concomitant]
     Active Substance: DULOXETINE HYDROCHLORIDE
  3. BACLOFEN. [Concomitant]
     Active Substance: BACLOFEN
  4. LYRICA [Concomitant]
     Active Substance: PREGABALIN

REACTIONS (5)
  - Drug effect decreased [Not Recovered/Not Resolved]
  - Device issue [Unknown]
  - Overdose [Recovered/Resolved]
  - Underdose [None]
  - Drug withdrawal syndrome [Recovered/Resolved]
